FAERS Safety Report 10256341 (Version 1)
Quarter: 2014Q2

REPORT INFORMATION
  Report Type: Spontaneous
  Country: GB (occurrence: GB)
  Receive Date: 20140624
  Receipt Date: 20140624
  Transmission Date: 20141212
  Serious: Yes (Life-Threatening, Hospitalization)
  Sender: FDA-Public Use
  Company Number: GB-TEVA-489621ISR

PATIENT
  Age: 89 Year
  Sex: Female

DRUGS (12)
  1. RAMIPRIL [Suspect]
     Dosage: 1.25 MILLIGRAM DAILY;
     Route: 048
  2. ADCAL-D3 [Concomitant]
  3. ASPIRIN [Concomitant]
  4. ATENOLOL [Concomitant]
  5. FERROUS FUMARATE [Concomitant]
  6. FOLIC ACID [Concomitant]
  7. FUROSEMIDE [Concomitant]
  8. LAXIDO [Concomitant]
  9. LEVOTHYROXINE [Concomitant]
  10. OMEPRAZOLE [Concomitant]
  11. QUININE SULPHATE [Concomitant]
  12. SPIRONOLACTONE [Concomitant]

REACTIONS (2)
  - Angioedema [Recovering/Resolving]
  - Unresponsive to stimuli [Unknown]
